FAERS Safety Report 20154231 (Version 1)
Quarter: 2021Q4

REPORT INFORMATION
  Report Type: Report from Study
  Country: EG (occurrence: EG)
  Receive Date: 20211207
  Receipt Date: 20211207
  Transmission Date: 20220303
  Serious: Yes (Other)
  Sender: FDA-Public Use
  Company Number: EG-NOVARTISPH-NVSC2021EG272712

PATIENT
  Age: 43 Year
  Sex: Male

DRUGS (5)
  1. COSENTYX [Suspect]
     Active Substance: SECUKINUMAB
     Indication: Ankylosing spondylitis
     Dosage: 150 MG, QD
     Route: 058
     Dates: start: 202006, end: 202008
  2. FOLIC ACID [Concomitant]
     Active Substance: FOLIC ACID
     Indication: Product used for unknown indication
     Dosage: 1 DOSAGE FORM, QD(AFTER LUNCH)
     Route: 065
     Dates: start: 202108
  3. SULFASALAZINE [Concomitant]
     Active Substance: SULFASALAZINE
     Indication: Red blood cell sedimentation rate increased
     Dosage: UNK (TWO TABLETS IN THE MORNING AND TWO TABLETS AT NIGHT THEN TWO TABLETS IN THE MORNING AND ONE TAB
     Route: 065
     Dates: start: 202108
  4. SULFASALAZINE [Concomitant]
     Active Substance: SULFASALAZINE
     Indication: Immune system disorder
  5. ALPHINTERN [Concomitant]
     Indication: Product used for unknown indication
     Dosage: 2 DOSAGE FORM, QD (ONE TABLET IN THE MORNING AND ONE TABLET AT NIGHT)
     Route: 065
     Dates: start: 202108

REACTIONS (8)
  - Eye inflammation [Not Recovered/Not Resolved]
  - Iritis [Not Recovered/Not Resolved]
  - Ocular hypertension [Not Recovered/Not Resolved]
  - Sacroiliitis [Not Recovered/Not Resolved]
  - Pain [Not Recovered/Not Resolved]
  - Red blood cell sedimentation rate abnormal [Recovering/Resolving]
  - Quality of life decreased [Not Recovered/Not Resolved]
  - Off label use [Recovered/Resolved]

NARRATIVE: CASE EVENT DATE: 20200601
